FAERS Safety Report 9152460 (Version 2)
Quarter: 2013Q3

REPORT INFORMATION
  Report Type: Spontaneous
  Country: CA (occurrence: CA)
  Receive Date: 20130308
  Receipt Date: 20130809
  Transmission Date: 20140515
  Serious: Yes (Hospitalization)
  Sender: FDA-Public Use
  Company Number: CA-ABBOTT-13P-028-1058345-00

PATIENT
  Age: 6 Year
  Sex: Female
  Weight: 25 kg

DRUGS (1)
  1. LUPRON DEPOT [Suspect]
     Indication: PRECOCIOUS PUBERTY
     Route: 051
     Dates: start: 20120417

REACTIONS (13)
  - Decreased appetite [Recovered/Resolved]
  - Restlessness [Recovered/Resolved]
  - Feeling abnormal [Recovered/Resolved]
  - Pyrexia [Recovered/Resolved]
  - Depressed mood [Recovered/Resolved]
  - Insomnia [Recovered/Resolved]
  - Nausea [Recovered/Resolved]
  - Nervousness [Recovered/Resolved]
  - Vomiting [Recovered/Resolved]
  - Cyanosis [Recovered/Resolved]
  - Insomnia [Recovered/Resolved]
  - Fall [Recovered/Resolved]
  - Pyrexia [Recovered/Resolved]
